FAERS Safety Report 4552787-5 (Version None)
Quarter: 2005Q1

REPORT INFORMATION
  Report Type: 
  Country: None (occurrence: None)
  Receive Date: 20050114
  Receipt Date: 20050104
  Transmission Date: 20050727
  Serious: Yes (Other)
  Sender: FDA-Public Use
  Company Number: FR-ROCHE-391202

PATIENT
  Age: 45 Year
  Sex: Female

DRUGS (7)
  1. DACLIZUMAB [Suspect]
     Route: 042
     Dates: start: 20041228, end: 20041228
  2. MYCOPHENOLATE MOFETIL [Suspect]
     Route: 048
     Dates: start: 20041228
  3. STEROIDS NOS [Suspect]
     Route: 048
     Dates: start: 20041229
  4. STEROIDS NOS [Suspect]
     Route: 048
     Dates: start: 20041228, end: 20041228
  5. AZANTAC [Suspect]
     Route: 065
     Dates: start: 20041228, end: 20041229
  6. BACTRIM [Suspect]
     Indication: DRUG USE FOR UNKNOWN INDICATION
     Route: 065
     Dates: start: 20041228, end: 20041229
  7. AUGMENTIN '125' [Suspect]
     Indication: DRUG USE FOR UNKNOWN INDICATION
     Route: 065
     Dates: start: 20041227, end: 20041228

REACTIONS (2)
  - RED BLOOD CELL SCHISTOCYTES PRESENT [None]
  - THROMBOTIC MICROANGIOPATHY [None]
